FAERS Safety Report 16950910 (Version 1)
Quarter: 2019Q4

REPORT INFORMATION
  Report Type: Spontaneous
  Country: US (occurrence: US)
  Receive Date: 20190903
  Receipt Date: 20190903
  Transmission Date: 20200122
  Serious: Yes (Life-Threatening, Hospitalization)
  Sender: FDA-Public Use
  Company Number: None

PATIENT
  Age: 51 Year
  Sex: Male

DRUGS (1)
  1. BUPREMORPHINE/NALOXONE [Suspect]
     Active Substance: BUPRENORPHINE\NALOXONE
     Indication: DRUG DEPENDENCE
     Dosage: ?          OTHER DOSE:8-2 MG;?
     Route: 048
     Dates: start: 20180508, end: 20180621

REACTIONS (4)
  - Swelling [None]
  - Nausea [None]
  - Vision blurred [None]
  - Dyspnoea [None]

NARRATIVE: CASE EVENT DATE: 20180627
